FAERS Safety Report 8288978-X (Version None)
Quarter: 2012Q2

REPORT INFORMATION
  Report Type: 
  Country: None (occurrence: None)
  Receive Date: 20120417
  Receipt Date: 20120410
  Transmission Date: 20120825
  Serious: Yes (Hospitalization)
  Sender: FDA-Public Use
  Company Number: US-BAYER-2011-110252

PATIENT
  Age: 18 Year
  Sex: Female
  Weight: 81.633 kg

DRUGS (9)
  1. YAZ [Suspect]
     Indication: PREMENSTRUAL SYNDROME
     Dosage: UNK
     Dates: start: 20090301, end: 20091001
  2. CIPROFLOXACIN HCL [Concomitant]
     Indication: FUNGAL OESOPHAGITIS
  3. ZANTAC [Concomitant]
  4. IBUPROFEN [Concomitant]
     Dosage: UNK
     Dates: start: 20090801
  5. DIFLUCAN [Concomitant]
     Indication: FUNGAL OESOPHAGITIS
  6. SERTRALINE HYDROCHLORIDE [Concomitant]
     Indication: DEPRESSION
  7. ZOFRAN [Concomitant]
  8. SERTRALINE HYDROCHLORIDE [Concomitant]
     Indication: ANXIETY
  9. YAZ [Suspect]

REACTIONS (7)
  - EMOTIONAL DISTRESS [None]
  - ANXIETY [None]
  - PAIN [None]
  - GALLBLADDER DISORDER [None]
  - ABDOMINAL PAIN [None]
  - GENERAL PHYSICAL HEALTH DETERIORATION [None]
  - BILIARY DYSKINESIA [None]
